FAERS Safety Report 4548237-5 (Version None)
Quarter: 2005Q1

REPORT INFORMATION
  Report Type: 
  Country: None (occurrence: None)
  Receive Date: 20050105
  Receipt Date: 20050105
  Transmission Date: 20050727
  Serious: Yes (Disabling)
  Sender: FDA-Public Use
  Company Number: None

PATIENT
  Age: 48 Year
  Sex: Male
  Weight: 95.2554 kg

DRUGS (2)
  1. LIPITOR [Suspect]
     Indication: NEUROPATHY
     Dosage: 20 MG DAILY
     Dates: start: 20040701, end: 20041001
  2. PRAVACHOL [Suspect]
     Dates: start: 20030301, end: 20040701

REACTIONS (3)
  - HYPOAESTHESIA ORAL [None]
  - NEUROPATHY PERIPHERAL [None]
  - SWELLING FACE [None]
